FAERS Safety Report 7632140-8 (Version None)
Quarter: 2011Q3

REPORT INFORMATION
  Report Type: 
  Country: None (occurrence: None)
  Receive Date: 20110725
  Receipt Date: 20110725
  Transmission Date: 20111222
  Serious: Yes (Other)
  Sender: FDA-Public Use
  Company Number: None

PATIENT
  Age: 37 Year
  Sex: Female
  Weight: 86.182 kg

DRUGS (1)
  1. MEFLOQUINE HYDROCHLORIDE [Suspect]
     Indication: MALARIA
     Dosage: 1
     Route: 048
     Dates: start: 20100524, end: 20100605

REACTIONS (4)
  - DIZZINESS [None]
  - ANXIETY [None]
  - PALPITATIONS [None]
  - CHEST DISCOMFORT [None]
